FAERS Safety Report 13530058 (Version 1)
Quarter: 2017Q2

REPORT INFORMATION
  Report Type: Spontaneous
  Country: US (occurrence: US)
  Receive Date: 20170509
  Receipt Date: 20170509
  Transmission Date: 20170830
  Serious: No
  Sender: FDA-Public Use
  Company Number: US-UCBSA-2016008215

PATIENT
  Age: 51 Year
  Sex: Female
  Weight: 157 kg

DRUGS (1)
  1. NEUPRO [Suspect]
     Active Substance: ROTIGOTINE
     Indication: RESTLESS LEGS SYNDROME
     Dosage: 2 MG, ONCE DAILY (QD), FOR SEVERAL MONTHS
     Route: 062

REACTIONS (4)
  - Product adhesion issue [Unknown]
  - Insomnia [Recovering/Resolving]
  - Restless legs syndrome [Recovering/Resolving]
  - Limb discomfort [Not Recovered/Not Resolved]

NARRATIVE: CASE EVENT DATE: 201602
